FAERS Safety Report 4528681-2 (Version None)
Quarter: 2004Q4

REPORT INFORMATION
  Report Type: 
  Country: None (occurrence: None)
  Receive Date: 20041216
  Receipt Date: 20041123
  Transmission Date: 20050328
  Serious: No
  Sender: FDA-Public Use
  Company Number: US-2004-BP-12184BP

PATIENT
  Sex: Male
  Weight: 97.3 kg

DRUGS (19)
  1. MICARDIS [Suspect]
     Dosage: 40 MG/80 MG
     Route: 048
  2. POTASSIUM CHLORIDE [Concomitant]
     Indication: PROPHYLAXIS
     Dates: start: 20040830
  3. ATORVASTATIN [Concomitant]
     Dates: start: 20040721
  4. CLONIDINE [Concomitant]
     Indication: HYPERTENSION
     Dates: start: 20030901
  5. NITROGLYCERIN [Concomitant]
     Indication: CORONARY ARTERY DISEASE
     Dates: start: 20030901
  6. RANITIDINE [Concomitant]
     Indication: GASTROOESOPHAGEAL REFLUX DISEASE
     Dates: start: 20030901
  7. COLESTIPOL HCL [Concomitant]
     Dates: start: 20030901
  8. METOPROLOL [Concomitant]
     Indication: HYPERTENSION
     Dates: start: 20030901
  9. LASIX [Concomitant]
     Indication: HYPERTENSION
     Dates: start: 20030901
  10. AMLODIPINE [Concomitant]
     Indication: CORONARY ARTERY DISEASE
     Dates: start: 20030901
  11. NPH INSULIN [Concomitant]
     Dates: start: 20030901
  12. REGULAR INSULIN [Concomitant]
     Dates: start: 20030901
  13. SODIUM CHLORIDE NASAL SPRAY [Concomitant]
     Indication: NASAL CONGESTION
     Route: 045
     Dates: start: 20030901
  14. ASPIRIN [Concomitant]
     Indication: CORONARY ARTERY DISEASE
     Dates: start: 19790101
  15. VITAMIN E [Concomitant]
     Dates: start: 19990101
  16. VITAMIN C [Concomitant]
     Dates: start: 19990101
  17. GARLIC [Concomitant]
     Dates: start: 19990101
  18. MULTIVITAMIN [Concomitant]
     Dates: start: 19990101
  19. FISH OIL [Concomitant]
     Indication: CORONARY ARTERY DISEASE
     Dates: start: 19990101

REACTIONS (2)
  - CHEST PAIN [None]
  - HYPERTENSION [None]
